FAERS Safety Report 17259174 (Version 2)
Quarter: 2020Q1

REPORT INFORMATION
  Report Type: Report from Study
  Country: GB (occurrence: GB)
  Receive Date: 20200110
  Receipt Date: 20200120
  Transmission Date: 20200409
  Serious: Yes (Hospitalization)
  Sender: FDA-Public Use
  Company Number: GB-PFIZER INC-2020010061

PATIENT

DRUGS (5)
  1. MITOXANTRONE HCL [Suspect]
     Active Substance: MITOXANTRONE HYDROCHLORIDE
     Dosage: 12 MG/M2, 1X/DAY
     Route: 042
  2. GEMTUZUMAB OZOGAMICIN [Suspect]
     Active Substance: GEMTUZUMAB OZOGAMICIN
     Indication: ACUTE MYELOID LEUKAEMIA
     Dosage: 1.6 MG, UNK (OTHER)
     Route: 042
  3. LIPOSOMAL ANNAMYCIN [Concomitant]
     Indication: PROPHYLAXIS
     Dosage: 25 MG, OTHER (TWICE WEEKLY)
     Dates: start: 20191217
  4. CYTARABINE. [Concomitant]
     Active Substance: CYTARABINE
     Indication: ACUTE MYELOID LEUKAEMIA
     Dosage: 53 MG, 1X/DAY
     Route: 042
     Dates: start: 20191211, end: 20191221
  5. COTRIMOXAZOLE [Concomitant]
     Active Substance: SULFAMETHOXAZOLE\TRIMETHOPRIM
     Indication: PROPHYLAXIS
     Dosage: 240 MG, OTHER (BD SATURDAY AND SUNDAY)
     Dates: start: 20191221

REACTIONS (1)
  - Febrile neutropenia [Not Recovered/Not Resolved]

NARRATIVE: CASE EVENT DATE: 20191225
